FAERS Safety Report 18916019 (Version 1)
Quarter: 2021Q1

REPORT INFORMATION
  Report Type: Report from Study
  Country: None (occurrence: IT)
  Receive Date: 20210218
  Receipt Date: 20210218
  Transmission Date: 20210420
  Serious: Yes (Hospitalization)
  Sender: FDA-Public Use
  Company Number: IT-ABBVIE-21K-083-3778794-00

PATIENT
  Age: 76 Year
  Sex: Male

DRUGS (2)
  1. DUODOPA [Suspect]
     Active Substance: CARBIDOPA\LEVODOPA
  2. DUODOPA [Suspect]
     Active Substance: CARBIDOPA\LEVODOPA
     Indication: PARKINSON^S DISEASE
     Dosage: TOTAL DAILY DOSE (MG): 1564; PUMP SETTING: MD: 5+3; CR: 4,8 (14H); ED: 3
     Route: 050
     Dates: start: 20160414

REACTIONS (2)
  - Atrial fibrillation [Unknown]
  - Arrhythmia [Unknown]

NARRATIVE: CASE EVENT DATE: 202101
